FAERS Safety Report 8052790-7 (Version None)
Quarter: 2012Q1

REPORT INFORMATION
  Report Type: 
  Country: None (occurrence: None)
  Receive Date: 20120118
  Receipt Date: 20120112
  Transmission Date: 20120608
  Serious: Yes (Hospitalization, Other)
  Sender: FDA-Public Use
  Company Number: PHHY2011BR110102

PATIENT
  Sex: Female

DRUGS (1)
  1. DIOVAN HCT [Suspect]
     Indication: HYPERTENSION
     Dosage: 1 DF (320/25 MG), DAILY IN THE MORNING
     Route: 048

REACTIONS (4)
  - PULMONARY EMBOLISM [None]
  - HYPERTENSION [None]
  - ANAEMIA [None]
  - OEDEMA PERIPHERAL [None]
